FAERS Safety Report 6564681-9 (Version None)
Quarter: 2010Q1

REPORT INFORMATION
  Report Type: 
  Country: None (occurrence: None)
  Receive Date: 20100201
  Receipt Date: 20100122
  Transmission Date: 20100710
  Serious: Yes (Other)
  Sender: FDA-Public Use
  Company Number: US-JNJFOC-20100109793

PATIENT
  Sex: Female
  Weight: 83.01 kg

DRUGS (3)
  1. STELARA [Suspect]
     Indication: PSORIASIS
     Route: 058
  2. STELARA [Suspect]
     Route: 058
  3. CLIMARA [Concomitant]

REACTIONS (3)
  - OEDEMA MOUTH [None]
  - RASH [None]
  - SWELLING [None]
